FAERS Safety Report 9836673 (Version 1)
Quarter: 2013Q4

REPORT INFORMATION
  Report Type: Spontaneous
  Country: US (occurrence: None)
  Receive Date: 20131120
  Receipt Date: 20131120
  Transmission Date: 20140711
  Serious: Yes (Other)
  Sender: FDA-Public Use
  Company Number: 1000049360

PATIENT
  Age: 79 Year
  Sex: Female

DRUGS (3)
  1. VIIBRYD [Suspect]
     Indication: DEPRESSION
     Route: 048
     Dates: start: 20130921, end: 20130927
  2. CAPTOPRIL (CAPTORPIL) [Concomitant]
  3. LORAZEPAM (LORAZEPAM) [Concomitant]

REACTIONS (5)
  - Dizziness [None]
  - Feeling abnormal [None]
  - Anxiety [None]
  - Fear [None]
  - Depressed mood [None]
